FAERS Safety Report 9348610 (Version 1)
Quarter: 2013Q2

REPORT INFORMATION
  Report Type: Spontaneous
  Country: FR (occurrence: FR)
  Receive Date: 20130614
  Receipt Date: 20130614
  Transmission Date: 20140414
  Serious: Yes (Hospitalization)
  Sender: FDA-Public Use
  Company Number: FR-JNJFOC-20130604975

PATIENT
  Age: 49 Year
  Sex: Male

DRUGS (3)
  1. REMICADE [Suspect]
     Indication: CROHN^S DISEASE
     Route: 042
     Dates: start: 20130603
  2. REMICADE [Suspect]
     Indication: CROHN^S DISEASE
     Route: 042
     Dates: start: 2008
  3. ALTEIS [Concomitant]
     Indication: HYPERTENSION
     Dosage: TAKEN FOR 3 YEARS
     Route: 065

REACTIONS (3)
  - Loss of consciousness [Unknown]
  - Malaise [Unknown]
  - Abdominal pain [Unknown]
